FAERS Safety Report 5266288-2 (Version None)
Quarter: 2007Q1

REPORT INFORMATION
  Report Type: 
  Country: None (occurrence: None)
  Receive Date: 20070315
  Receipt Date: 20070309
  Transmission Date: 20070707
  Serious: Yes (Other)
  Sender: FDA-Public Use
  Company Number: DK-AVENTIS-200712076GDDC

PATIENT
  Age: 78 Year
  Sex: Female

DRUGS (1)
  1. MINIRIN [Suspect]
     Route: 048
     Dates: start: 20070208

REACTIONS (2)
  - DYSPNOEA [None]
  - SWELLING FACE [None]
